FAERS Safety Report 26125980 (Version 1)
Quarter: 2025Q4

REPORT INFORMATION
  Report Type: Spontaneous
  Country: EU (occurrence: EU)
  Receive Date: 20251205
  Receipt Date: 20251205
  Transmission Date: 20260118
  Serious: Yes (Life-Threatening, Hospitalization)
  Sender: CHEPLAPHARM
  Company Number: None

PATIENT
  Age: 58 Year
  Sex: Female

DRUGS (25)
  1. CLONAZEPAM [Interacting]
     Active Substance: CLONAZEPAM
     Indication: Schizoaffective disorder
     Dosage: 0-0-0-2?DAILY DOSE: 2 MILLIGRAM
     Route: 048
     Dates: start: 20250218, end: 20250218
  2. CLONAZEPAM [Interacting]
     Active Substance: CLONAZEPAM
     Indication: Suicide attempt
     Dosage: 0-0-0-2?DAILY DOSE: 2 MILLIGRAM
     Route: 048
     Dates: start: 20250218, end: 20250218
  3. CLONAZEPAM [Interacting]
     Active Substance: CLONAZEPAM
     Indication: Schizoaffective disorder
     Dosage: SCHIZOAFFECTIVE DISORDER (FOLLOWED PRIVATELY. TREATMENT WITH ARIPIPRAZOLE, FLUOXETINE, AND RIVOTRIL)
  4. CLONAZEPAM [Interacting]
     Active Substance: CLONAZEPAM
     Indication: Suicide attempt
     Dosage: SCHIZOAFFECTIVE DISORDER (FOLLOWED PRIVATELY. TREATMENT WITH ARIPIPRAZOLE, FLUOXETINE, AND RIVOTRIL)
  5. ARIPIPRAZOLE [Interacting]
     Active Substance: ARIPIPRAZOLE
     Indication: Schizoaffective disorder
     Route: 048
     Dates: start: 20250218, end: 20250218
  6. ARIPIPRAZOLE [Interacting]
     Active Substance: ARIPIPRAZOLE
     Indication: Suicide attempt
     Route: 048
     Dates: start: 20250218, end: 20250218
  7. ARIPIPRAZOLE [Interacting]
     Active Substance: ARIPIPRAZOLE
     Indication: Schizoaffective disorder
     Dosage: SCHIZOAFFECTIVE DISORDER (FOLLOWED PRIVATELY. TREATMENT WITH ARIPIPRAZOLE, FLUOXETINE, AND RIVOTRIL)
  8. ARIPIPRAZOLE [Interacting]
     Active Substance: ARIPIPRAZOLE
     Indication: Suicide attempt
     Dosage: SCHIZOAFFECTIVE DISORDER (FOLLOWED PRIVATELY. TREATMENT WITH ARIPIPRAZOLE, FLUOXETINE, AND RIVOTRIL)
  9. FLUOXETINE [Interacting]
     Active Substance: FLUOXETINE HYDROCHLORIDE
     Indication: Schizoaffective disorder
     Dosage: 2-0-0, TWICE DAILY?DAILY DOSE: 40 MILLIGRAM
     Route: 048
     Dates: start: 20250218, end: 20250218
  10. FLUOXETINE [Interacting]
     Active Substance: FLUOXETINE HYDROCHLORIDE
     Indication: Suicide attempt
     Dosage: 2-0-0, TWICE DAILY?DAILY DOSE: 40 MILLIGRAM
     Route: 048
     Dates: start: 20250218, end: 20250218
  11. FLUOXETINE [Interacting]
     Active Substance: FLUOXETINE HYDROCHLORIDE
     Indication: Schizoaffective disorder
     Dosage: SCHIZOAFFECTIVE DISORDER (FOLLOWED PRIVATELY. TREATMENT WITH ARIPIPRAZOLE, FLUOXETINE, AND RIVOTRIL)
  12. FLUOXETINE [Interacting]
     Active Substance: FLUOXETINE HYDROCHLORIDE
     Indication: Suicide attempt
     Dosage: SCHIZOAFFECTIVE DISORDER (FOLLOWED PRIVATELY. TREATMENT WITH ARIPIPRAZOLE, FLUOXETINE, AND RIVOTRIL)
  13. LORAZEPAM [Interacting]
     Active Substance: LORAZEPAM
     Indication: Suicide attempt
     Route: 048
     Dates: start: 20250218, end: 20250218
  14. CALCIFEDIOL [Suspect]
     Active Substance: CALCIFEDIOL
     Dosage: MONTHLY
  15. HYDROXYCHLOROQUINE [Suspect]
     Active Substance: HYDROXYCHLOROQUINE
     Dosage: 1-0-0?DAILY DOSE: 200 MILLIGRAM
  16. TEGRETOL [Suspect]
     Active Substance: CARBAMAZEPINE
     Dosage: DAILY DOSE: 400 MILLIGRAM
  17. TEGRETOL [Suspect]
     Active Substance: CARBAMAZEPINE
     Dosage: 1-1-1
  18. AMISULPRIDE [Suspect]
     Active Substance: AMISULPRIDE
     Dosage: DAILY DOSE: 400 MILLIGRAM
  19. AMISULPRIDE [Suspect]
     Active Substance: AMISULPRIDE
     Dosage: 1.5-0-1.5
  20. METAMIZOLE [Suspect]
     Active Substance: METAMIZOLE
     Dosage: DAILY DOSE: 575 MILLIGRAM
  21. METAMIZOLE [Suspect]
     Active Substance: METAMIZOLE
     Dosage: 1-1-1
  22. ACETAMINOPHEN [Suspect]
     Active Substance: ACETAMINOPHEN
  23. LEVOTHYROXINE SODIUM [Suspect]
     Active Substance: LEVOTHYROXINE SODIUM
     Dosage: DAILY DOSE: 75 MICROGRAM
  24. ABILIFY [Suspect]
     Active Substance: ARIPIPRAZOLE
     Dosage: 1-0-0?DAILY DOSE: 10 MILLIGRAM
  25. ASPIRIN [Suspect]
     Active Substance: ASPIRIN
     Dosage: 0-1-0?DAILY DOSE: 100 MILLIGRAM

REACTIONS (12)
  - Depressed level of consciousness [Recovered/Resolved]
  - Pneumonia aspiration [Recovered/Resolved]
  - Septic shock [Recovered/Resolved]
  - Intentional overdose [Recovered/Resolved]
  - Hypernatraemia [Recovering/Resolving]
  - Toxicity to various agents [Unknown]
  - Dysarthria [Unknown]
  - Vomiting [Unknown]
  - Incontinence [Unknown]
  - Hypoperfusion [Unknown]
  - Bradyphrenia [Unknown]
  - Off label use [Unknown]

NARRATIVE: CASE EVENT DATE: 20250218
